FAERS Safety Report 15744608 (Version 2)
Quarter: 2019Q1

REPORT INFORMATION
  Report Type: Spontaneous
  Country: CH (occurrence: CH)
  Receive Date: 20181220
  Receipt Date: 20190114
  Transmission Date: 20190417
  Serious: Yes (Life-Threatening, Hospitalization, Other)
  Sender: FDA-Public Use
  Company Number: CH-ARBOR PHARMACEUTICALS, LLC-CH-2018ARB001247

PATIENT
  Age: 86 Year
  Sex: Female
  Weight: 49.8 kg

DRUGS (13)
  1. EDARBI [Suspect]
     Active Substance: AZILSARTAN KAMEDOXOMIL
     Indication: HYPERTENSION
     Dosage: 80 MG, QD
     Route: 048
     Dates: start: 20170123, end: 20180911
  2. EDARBI [Suspect]
     Active Substance: AZILSARTAN KAMEDOXOMIL
     Dosage: 80 MG, QD
     Route: 048
     Dates: start: 20180920, end: 20181009
  3. EDARBI [Suspect]
     Active Substance: AZILSARTAN KAMEDOXOMIL
     Dosage: 80 MG, QD
     Route: 048
     Dates: start: 20181031, end: 20181102
  4. CREON [Concomitant]
     Active Substance: PANCRELIPASE AMYLASE\PANCRELIPASE LIPASE\PANCRELIPASE PROTEASE
     Indication: PRODUCT USED FOR UNKNOWN INDICATION
     Dosage: UNK
     Dates: start: 201810
  5. EDARBI [Suspect]
     Active Substance: AZILSARTAN KAMEDOXOMIL
     Dosage: 80 MG, QD
     Route: 048
     Dates: start: 20181018, end: 20181018
  6. ADENURIC [Concomitant]
     Active Substance: FEBUXOSTAT
     Indication: PRODUCT USED FOR UNKNOWN INDICATION
     Dosage: UNK
     Dates: end: 201809
  7. AMLODIPIN SPIRIG HC [Concomitant]
     Indication: PRODUCT USED FOR UNKNOWN INDICATION
     Dosage: UNK
     Dates: start: 201810
  8. ATORVASTATIN PFIZER [Concomitant]
     Active Substance: ATORVASTATIN
     Indication: PRODUCT USED FOR UNKNOWN INDICATION
     Dosage: UNK
     Dates: end: 201809
  9. BUDENOFALK [Concomitant]
     Active Substance: BUDESONIDE
     Indication: PRODUCT USED FOR UNKNOWN INDICATION
     Dosage: UNK
     Dates: start: 201810
  10. ELTROXIN [Concomitant]
     Active Substance: LEVOTHYROXINE
     Indication: PRODUCT USED FOR UNKNOWN INDICATION
     Dosage: UNK
  11. PERENTEROL [Concomitant]
     Active Substance: SACCHAROMYCES CEREVISIAE
     Indication: PRODUCT USED FOR UNKNOWN INDICATION
     Dosage: UNK
     Dates: end: 201809
  12. KLACID                             /00984601/ [Concomitant]
     Active Substance: CLARITHROMYCIN
     Indication: PRODUCT USED FOR UNKNOWN INDICATION
     Dosage: UNK
     Dates: start: 20180910, end: 20180912
  13. MOTILIUM [Concomitant]
     Active Substance: DOMPERIDONE
     Indication: PRODUCT USED FOR UNKNOWN INDICATION
     Dosage: UNK
     Dates: start: 201810

REACTIONS (3)
  - Acute kidney injury [Recovered/Resolved]
  - Acute kidney injury [Recovered/Resolved]
  - Sprue-like enteropathy [Recovered/Resolved with Sequelae]

NARRATIVE: CASE EVENT DATE: 20180905
